FAERS Safety Report 7469331-5 (Version None)
Quarter: 2011Q2

REPORT INFORMATION
  Report Type: 
  Country: None (occurrence: None)
  Receive Date: 20110510
  Receipt Date: 20110503
  Transmission Date: 20111010
  Serious: Yes (Other)
  Sender: FDA-Public Use
  Company Number: GR-SP-2011-02620

PATIENT

DRUGS (1)
  1. IMMUCYST [Suspect]
     Indication: BLADDER CANCER
     Route: 043

REACTIONS (6)
  - POLLAKIURIA [None]
  - HAEMATURIA [None]
  - PYREXIA [None]
  - DYSURIA [None]
  - BACTERAEMIA [None]
  - FATIGUE [None]
